FAERS Safety Report 17575632 (Version 1)
Quarter: 2020Q1

REPORT INFORMATION
  Report Type: Spontaneous
  Country: US (occurrence: US)
  Receive Date: 20200324
  Receipt Date: 20200324
  Transmission Date: 20200409
  Serious: No
  Sender: FDA-Public Use
  Company Number: US-SA-2020SA066368

PATIENT
  Age: 33 Year
  Sex: Male

DRUGS (1)
  1. DUPIXENT [Suspect]
     Active Substance: DUPILUMAB
     Dosage: 300 MG, QOW
     Dates: start: 20191225

REACTIONS (4)
  - Drug ineffective [Unknown]
  - Injection site bruising [Unknown]
  - Weight decreased [Unknown]
  - Rash macular [Unknown]

NARRATIVE: CASE EVENT DATE: 202001
